FAERS Safety Report 19441735 (Version 2)
Quarter: 2021Q2

REPORT INFORMATION
  Report Type: Spontaneous
  Country: US (occurrence: US)
  Receive Date: 20210621
  Receipt Date: 20210624
  Transmission Date: 20210717
  Serious: Yes (Other)
  Sender: FDA-Public Use
  Company Number: US-IPSEN BIOPHARMACEUTICALS, INC.-2021-14816

PATIENT
  Age: 50 Year
  Sex: Female

DRUGS (9)
  1. DYSPORT [Suspect]
     Active Substance: ABOBOTULINUMTOXINA
     Indication: SKIN WRINKLING
     Dosage: 150 IU (GLABELLA, CROW^S FEET AND FOREHEAD)
     Route: 065
     Dates: start: 20210510, end: 20210510
  2. IBUPROFEN. [Concomitant]
     Active Substance: IBUPROFEN
  3. RESTYLANE [Suspect]
     Active Substance: HYALURONIC ACID
     Dosage: 1ML LTEMPLE, 0.2ML EACH TEAR TROUGH; UNKNOWN; 0.3 ML EACH LIP AND 02 ML EACH SIDE SUBMALAR
     Dates: start: 20210527, end: 20210527
  4. DYSPORT [Suspect]
     Active Substance: ABOBOTULINUMTOXINA
     Indication: OFF LABEL USE
  5. DYSPORT [Suspect]
     Active Substance: ABOBOTULINUMTOXINA
     Indication: SKIN WRINKLING
  6. RESTYLANE [Suspect]
     Active Substance: HYALURONIC ACID
     Indication: SKIN WRINKLING
     Dosage: 1ML LTEMPLE, 0.2ML EACH TEAR TROUGH; UNKNOWN; 0.3 ML EACH LIP AND 02 ML EACH SIDE SUBMALAR
     Dates: start: 202011, end: 202011
  7. MODERNA COVID?19 VACCINE [Suspect]
     Active Substance: CX-024414
     Indication: COVID-19
     Dates: start: 20210505, end: 20210505
  8. DYSPORT [Suspect]
     Active Substance: ABOBOTULINUMTOXINA
     Indication: SKIN WRINKLING
  9. RESTYLANE [Suspect]
     Active Substance: HYALURONIC ACID
     Indication: SKIN WRINKLING
     Dosage: 1ML LTEMPLE, 0.2ML EACH TEAR TROUGH; UNKNOWN; 0.3 ML EACH LIP AND 02 ML EACH SIDE SUBMALAR
     Dates: start: 202101, end: 202101

REACTIONS (10)
  - Erythema [Recovering/Resolving]
  - Periorbital oedema [Recovering/Resolving]
  - Skin mass [Unknown]
  - Periorbital cellulitis [Unknown]
  - Off label use [Unknown]
  - Product preparation error [Unknown]
  - Off label use [Unknown]
  - Tenderness [Unknown]
  - Inflammation [Unknown]
  - Injection site nodule [Unknown]

NARRATIVE: CASE EVENT DATE: 2021
